FAERS Safety Report 14305565 (Version 1)
Quarter: 2017Q4

REPORT INFORMATION
  Report Type: Spontaneous
  Country: PL (occurrence: PL)
  Receive Date: 20171219
  Receipt Date: 20171219
  Transmission Date: 20180321
  Serious: Yes (Hospitalization)
  Sender: FDA-Public Use
  Company Number: PL-OTSUKA-15101520

PATIENT
  Age: 50 Year
  Sex: Male

DRUGS (2)
  1. ABILIFY [Suspect]
     Active Substance: ARIPIPRAZOLE
     Indication: PRODUCT USED FOR UNKNOWN INDICATION
     Dosage: THEN 15MG/DAY IN MORNING.DOSE REDUCED TO 22,5 MG/DAY.AFTERDISCHARGE 30MG/DAY
     Route: 048
  2. CARBAMAZEPINE. [Concomitant]
     Active Substance: CARBAMAZEPINE
     Indication: PRODUCT USED FOR UNKNOWN INDICATION
     Dosage: 2 DOSES
     Route: 065

REACTIONS (6)
  - Fatigue [Recovered/Resolved]
  - Paranoia [Recovering/Resolving]
  - Somnolence [Recovered/Resolved]
  - Irritability [Recovered/Resolved]
  - Weight decreased [Unknown]
  - Decreased appetite [Unknown]
